FAERS Safety Report 6891644-6 (Version None)
Quarter: 2010Q3

REPORT INFORMATION
  Report Type: 
  Country: None (occurrence: None)
  Receive Date: 20100731
  Receipt Date: 20070918
  Transmission Date: 20110219
  Serious: No
  Sender: FDA-Public Use
  Company Number: US-PFIZER INC-2007077827

PATIENT
  Sex: Male
  Weight: 83.636 kg

DRUGS (9)
  1. NEURONTIN [Suspect]
     Indication: ARTHRITIS
     Route: 048
     Dates: start: 20070501
  2. LIPITOR [Concomitant]
  3. ALTACE [Concomitant]
  4. COREG [Concomitant]
  5. TAMSULOSIN HYDROCHLORIDE [Concomitant]
  6. ACETYLSALICYLIC ACID SRT [Concomitant]
  7. NEXIUM [Concomitant]
  8. ADVAIR DISKUS 100/50 [Concomitant]
  9. FLONASE [Concomitant]

REACTIONS (2)
  - DIZZINESS [None]
  - DRUG INEFFECTIVE [None]
